FAERS Safety Report 7944077-5 (Version None)
Quarter: 2011Q4

REPORT INFORMATION
  Report Type: 
  Country: None (occurrence: None)
  Receive Date: 20111128
  Receipt Date: 20111115
  Transmission Date: 20120403
  Serious: No
  Sender: FDA-Public Use
  Company Number: US-B.I. PHARMACEUTICALS,INC./RIDGEFIELD-2011-BP-26300BP

PATIENT
  Sex: Female

DRUGS (9)
  1. LIPITOR [Concomitant]
     Indication: BLOOD CHOLESTEROL INCREASED
     Dosage: 10 MG
     Route: 048
  2. PRILOSEC [Concomitant]
     Indication: GASTROOESOPHAGEAL REFLUX DISEASE
     Dosage: 20 MG
     Route: 048
  3. SPIRIVA [Concomitant]
     Indication: ASTHMA
     Dosage: 18 MCG
     Route: 055
  4. PRADAXA [Suspect]
     Indication: ATRIAL FIBRILLATION
     Dosage: 300 MG
     Route: 048
     Dates: start: 20111108
  5. SINGULAIR [Concomitant]
     Indication: ASTHMA
  6. LEVOXYL [Concomitant]
     Indication: HYPOTHYROIDISM
     Dosage: 75 MCG
     Route: 048
  7. DILTIAZEM [Concomitant]
     Indication: ATRIAL FIBRILLATION
     Dosage: 240 MG
     Route: 048
     Dates: start: 20060101
  8. FLONASE [Concomitant]
     Indication: NASAL POLYPS
  9. FLOVENT [Concomitant]
     Indication: ASTHMA

REACTIONS (1)
  - CHEST PAIN [None]
